FAERS Safety Report 21868519 (Version 1)
Quarter: 2023Q1

REPORT INFORMATION
  Report Type: Report from Study
  Country: US (occurrence: US)
  Receive Date: 20230117
  Receipt Date: 20230117
  Transmission Date: 20230418
  Serious: Yes (Other)
  Sender: FDA-Public Use
  Company Number: US-ABBVIE-4270341

PATIENT
  Age: 63 Year
  Sex: Male

DRUGS (1)
  1. HUMIRA [Suspect]
     Active Substance: ADALIMUMAB
     Indication: Rheumatoid arthritis
     Dosage: STRENGTH: 40 MG
     Route: 058

REACTIONS (6)
  - Pulmonary oedema [Unknown]
  - Gait disturbance [Unknown]
  - Rheumatoid lung [Not Recovered/Not Resolved]
  - Renal pain [Unknown]
  - Pain [Unknown]
  - Lung disorder [Unknown]

NARRATIVE: CASE EVENT DATE: 20221217
